FAERS Safety Report 21967407 (Version 3)
Quarter: 2023Q1

REPORT INFORMATION
  Report Type: Spontaneous
  Country: US (occurrence: US)
  Receive Date: 20230208
  Receipt Date: 20230329
  Transmission Date: 20230417
  Serious: Yes (Other)
  Sender: FDA-Public Use
  Company Number: US-BAYER-2023P009305

PATIENT
  Age: 14 Year
  Sex: Male

DRUGS (3)
  1. JIVI [Suspect]
     Active Substance: DAMOCTOCOG ALFA PEGOL
     Dosage: NFUSE AT LEAST 2346 UNITS TWICE A WEEK
  2. JIVI [Suspect]
     Active Substance: DAMOCTOCOG ALFA PEGOL
     Dosage: NFUSE AT LEAST 2346 UNITS PRN
  3. JIVI [Suspect]
     Active Substance: DAMOCTOCOG ALFA PEGOL
     Dosage: 3 DF FOR HEAD INJURY TREATMENT
     Dates: start: 202303, end: 202303

REACTIONS (3)
  - Haemorrhage [Recovered/Resolved]
  - Head injury [Recovering/Resolving]
  - Traumatic haematoma [Recovering/Resolving]

NARRATIVE: CASE EVENT DATE: 20230125
